FAERS Safety Report 17801032 (Version 1)
Quarter: 2020Q2

REPORT INFORMATION
  Report Type: Spontaneous
  Country: IT (occurrence: IT)
  Receive Date: 20200519
  Receipt Date: 20200519
  Transmission Date: 20200714
  Serious: Yes (Life-Threatening, Hospitalization, Other)
  Sender: FDA-Public Use
  Company Number: IT-LUPIN PHARMACEUTICALS INC.-2020-02204

PATIENT
  Age: 60 Year
  Sex: Male

DRUGS (2)
  1. LOSARTAN. [Suspect]
     Active Substance: LOSARTAN
     Indication: HYPERTENSION
     Dosage: UNK
     Route: 065
  2. HYDROCHLOROTHIAZIDE. [Suspect]
     Active Substance: HYDROCHLOROTHIAZIDE
     Indication: HYPERTENSION
     Dosage: UNK
     Route: 065

REACTIONS (6)
  - COVID-19 pneumonia [Recovered/Resolved]
  - Hypoxia [Recovered/Resolved]
  - Thrombocytopenia [Unknown]
  - Respiratory failure [Recovered/Resolved]
  - Pleural effusion [Recovered/Resolved]
  - Condition aggravated [Recovered/Resolved]
